FAERS Safety Report 13939332 (Version 1)
Quarter: 2017Q3

REPORT INFORMATION
  Report Type: Spontaneous
  Country: US (occurrence: US)
  Receive Date: 20170906
  Receipt Date: 20170906
  Transmission Date: 20171127
  Serious: Yes (Death)
  Sender: FDA-Public Use
  Company Number: US-ROCHE-1987151

PATIENT
  Age: 62 Year
  Sex: Female

DRUGS (1)
  1. ZELBORAF [Suspect]
     Active Substance: VEMURAFENIB
     Indication: METASTASIS
     Route: 048
     Dates: start: 20160706, end: 20170808

REACTIONS (1)
  - Death [Fatal]

NARRATIVE: CASE EVENT DATE: 20170808
